FAERS Safety Report 11050323 (Version 3)
Quarter: 2015Q2

REPORT INFORMATION
  Report Type: Spontaneous
  Country: US (occurrence: US)
  Receive Date: 20150421
  Receipt Date: 20150605
  Transmission Date: 20150821
  Serious: Yes (Hospitalization, Other)
  Sender: FDA-Public Use
  Company Number: US-AMGEN-USASP2015036321

PATIENT
  Age: 68 Year
  Sex: Female
  Weight: 67.12 kg

DRUGS (1)
  1. PROLIA [Suspect]
     Active Substance: DENOSUMAB
     Indication: OSTEOPOROSIS POSTMENOPAUSAL
     Dosage: 60 MG/ML, Q6MO
     Route: 065
     Dates: start: 20141020, end: 20150420

REACTIONS (10)
  - Dysuria [Not Recovered/Not Resolved]
  - Joint crepitation [Not Recovered/Not Resolved]
  - Urinary retention [Not Recovered/Not Resolved]
  - Urinary tract infection [Unknown]
  - Temporomandibular joint syndrome [Not Recovered/Not Resolved]
  - Bladder pain [Unknown]
  - Frustration [Unknown]
  - Escherichia bacteraemia [Unknown]
  - Cystitis [Unknown]
  - Suprapubic pain [Not Recovered/Not Resolved]

NARRATIVE: CASE EVENT DATE: 201410
